FAERS Safety Report 10165664 (Version 1)
Quarter: 2014Q2

REPORT INFORMATION
  Report Type: Spontaneous
  Country: US (occurrence: US)
  Receive Date: 20140510
  Receipt Date: 20140510
  Transmission Date: 20141212
  Serious: No
  Sender: FDA-Public Use
  Company Number: US-BRISTOL-MYERS SQUIBB COMPANY-19884576

PATIENT
  Age: 58 Year
  Sex: Male
  Weight: 87.07 kg

DRUGS (7)
  1. BYDUREON [Suspect]
  2. ONGLYZA TABS 5 MG [Concomitant]
  3. METFORMIN [Concomitant]
  4. LISINOPRIL [Concomitant]
  5. SIMVASTATIN [Concomitant]
  6. GLIMEPIRIDE [Concomitant]
  7. GABAPENTIN [Concomitant]

REACTIONS (4)
  - Injection site swelling [Unknown]
  - Injection site induration [Unknown]
  - Injection site pruritus [Unknown]
  - Decreased appetite [Unknown]
